FAERS Safety Report 6827613-1 (Version None)
Quarter: 2010Q3

REPORT INFORMATION
  Report Type: 
  Country: None (occurrence: None)
  Receive Date: 20100709
  Receipt Date: 20070120
  Transmission Date: 20110219
  Serious: No
  Sender: FDA-Public Use
  Company Number: US-PFIZER INC-2007005463

PATIENT
  Sex: Female
  Weight: 65.77 kg

DRUGS (9)
  1. CHANTIX [Suspect]
     Indication: SMOKING CESSATION THERAPY
     Dates: start: 20070101
  2. ALBUTEROL [Concomitant]
  3. ZOLOFT [Concomitant]
  4. ADVAIR DISKUS 100/50 [Concomitant]
  5. XANAX [Concomitant]
  6. LIPITOR [Concomitant]
  7. MAGNESIUM [Concomitant]
  8. VICODIN [Concomitant]
  9. PREVACID [Concomitant]

REACTIONS (6)
  - ABDOMINAL PAIN UPPER [None]
  - ABNORMAL DREAMS [None]
  - COUGH [None]
  - FLATULENCE [None]
  - MALAISE [None]
  - NAUSEA [None]
